FAERS Safety Report 14536779 (Version 2)
Quarter: 2018Q1

REPORT INFORMATION
  Report Type: Spontaneous
  Country: US (occurrence: US)
  Receive Date: 20180215
  Receipt Date: 20180316
  Transmission Date: 20180509
  Serious: Yes (Hospitalization)
  Sender: FDA-Public Use
  Company Number: US-SA-2018SA030756

PATIENT
  Age: 72 Year
  Sex: Female
  Weight: 61 kg

DRUGS (2)
  1. RENVELA [Suspect]
     Active Substance: SEVELAMER CARBONATE
     Indication: BLOOD PHOSPHORUS
     Dosage: FREQUENCY- 2 W/MEALS 1, W/SNACKS
     Route: 048
     Dates: start: 2014
  2. RENVELA [Suspect]
     Active Substance: SEVELAMER CARBONATE
     Indication: DIALYSIS
     Dosage: FREQUENCY- 2 W/MEALS 1, W/SNACKS
     Route: 048
     Dates: start: 2014

REACTIONS (9)
  - Malaise [Recovering/Resolving]
  - Syncope [Recovering/Resolving]
  - Unresponsive to stimuli [Recovering/Resolving]
  - Gait disturbance [Unknown]
  - Infection [Unknown]
  - Cardiac failure [Recovering/Resolving]
  - Perforated ulcer [Unknown]
  - Multiple fractures [Recovering/Resolving]
  - Pain [Recovering/Resolving]

NARRATIVE: CASE EVENT DATE: 20171123
